FAERS Safety Report 10305992 (Version 1)
Quarter: 2014Q3

REPORT INFORMATION
  Report Type: Spontaneous
  Country: US (occurrence: None)
  Receive Date: 20140714
  Receipt Date: 20140714
  Transmission Date: 20150326
  Serious: Yes (Life-Threatening, Hospitalization, Disabling)
  Sender: FDA-Public Use
  Company Number: None

PATIENT
  Age: 64 Year
  Sex: Female
  Weight: 78.02 kg

DRUGS (1)
  1. OXCARBAZEPINE. [Suspect]
     Active Substance: OXCARBAZEPINE
     Indication: TRIGEMINAL NEURALGIA
     Dosage: 2 PILLS TWICE DAILY TAKEN BY MOUTH
     Route: 048
     Dates: start: 20140213, end: 20140620

REACTIONS (9)
  - Weight decreased [None]
  - Muscle atrophy [None]
  - Pain [None]
  - Diplopia [None]
  - Muscular weakness [None]
  - Renal failure [None]
  - Nausea [None]
  - Vertigo [None]
  - Fall [None]
